FAERS Safety Report 11286964 (Version 1)
Quarter: 2015Q3

REPORT INFORMATION
  Report Type: Spontaneous
  Country: US (occurrence: US)
  Receive Date: 20150721
  Receipt Date: 20150721
  Transmission Date: 20151125
  Serious: No
  Sender: FDA-Public Use
  Company Number: US-BIOGENIDEC-2015BI096090

PATIENT
  Sex: Female
  Weight: 53 kg

DRUGS (7)
  1. LEMTRADA (ALEMTUZUMAB) [Concomitant]
  2. PRISTIQ (DESVENLAFAXINE SUCCINATE) [Concomitant]
     Active Substance: DESVENLAFAXINE SUCCINATE
  3. MECLIZINE HCL (MECLOZINE HYDROCHLORIDE) [Concomitant]
  4. VITAMIN D (ERGOCALCIFEROL) [Concomitant]
     Active Substance: ERGOCALCIFEROL
  5. AMANTADINE (AMANTADINE HYDROCHLORIDE) [Concomitant]
  6. ACYCLOVIR (ACICLOVIR) [Concomitant]
  7. TECFIDERA [Suspect]
     Active Substance: DIMETHYL FUMARATE
     Indication: MULTIPLE SCLEROSIS
     Route: 048
     Dates: end: 2015

REACTIONS (3)
  - Drug ineffective [Unknown]
  - Condition aggravated [Unknown]
  - Gait disturbance [Unknown]
